FAERS Safety Report 8880081 (Version 2)
Quarter: 2012Q4

REPORT INFORMATION
  Report Type: 
  Country: US (occurrence: US)
  Receive Date: 20121031
  Receipt Date: 20121112
  Transmission Date: 20130627
  Serious: Yes (Other)
  Sender: FDA-Public Use
  Company Number: US-ASTRAZENECA-2012SE80894

PATIENT
  Age: 59 Year
  Sex: Female
  Weight: 78 kg

DRUGS (16)
  1. SEROQUEL [Suspect]
     Indication: BIPOLAR DISORDER
     Route: 048
     Dates: start: 2006
  2. SEROQUEL [Suspect]
     Indication: SLEEP DISORDER
     Route: 048
     Dates: start: 2006
  3. SEROQUEL [Suspect]
     Indication: BIPOLAR DISORDER
     Route: 048
     Dates: start: 2007
  4. SEROQUEL [Suspect]
     Indication: SLEEP DISORDER
     Route: 048
     Dates: start: 2007
  5. SEROQUEL [Suspect]
     Indication: BIPOLAR DISORDER
     Route: 048
     Dates: end: 2012
  6. SEROQUEL [Suspect]
     Indication: SLEEP DISORDER
     Route: 048
     Dates: end: 2012
  7. SEROQUEL [Suspect]
     Indication: BIPOLAR DISORDER
     Route: 048
     Dates: start: 2012
  8. SEROQUEL [Suspect]
     Indication: SLEEP DISORDER
     Route: 048
     Dates: start: 2012
  9. SEROQUEL [Suspect]
     Indication: BIPOLAR DISORDER
     Route: 048
  10. SEROQUEL [Suspect]
     Indication: SLEEP DISORDER
     Route: 048
  11. OMEPRAZOLE [Suspect]
     Indication: GASTROOESOPHAGEAL REFLUX DISEASE
     Dates: start: 2006
  12. CYMBALTA [Suspect]
     Dates: start: 201208
  13. FLOXETINE HCL [Concomitant]
     Indication: DEPRESSION
     Route: 048
     Dates: start: 2006
  14. TEMAZEPAM [Concomitant]
     Indication: INSOMNIA
     Route: 048
     Dates: start: 2010
  15. METOPROLOL TARTRATE [Concomitant]
     Indication: BLOOD PRESSURE
     Route: 048
     Dates: start: 2008
  16. PRAVASTATIN [Concomitant]
     Indication: BLOOD CHOLESTEROL
     Route: 048
     Dates: start: 2006

REACTIONS (16)
  - Spinal column stenosis [Unknown]
  - Sjogren^s syndrome [Unknown]
  - Mania [Unknown]
  - Infection [Unknown]
  - Drug intolerance [Unknown]
  - Hunger [Unknown]
  - Memory impairment [Unknown]
  - Arthralgia [Unknown]
  - Somnolence [Unknown]
  - Weight increased [Unknown]
  - Sleep-related eating disorder [Unknown]
  - Drug withdrawal syndrome [Unknown]
  - Poor quality sleep [Unknown]
  - Body height decreased [Unknown]
  - Intentional drug misuse [Unknown]
  - Drug ineffective [Unknown]
